FAERS Safety Report 9177785 (Version 1)
Quarter: 2013Q1

REPORT INFORMATION
  Report Type: Spontaneous
  Country: US (occurrence: US)
  Receive Date: 20130321
  Receipt Date: 20130321
  Transmission Date: 20140127
  Serious: No
  Sender: FDA-Public Use
  Company Number: US-PFIZER INC-2013091134

PATIENT
  Age: 27 Year
  Sex: Female
  Weight: 54.4 kg

DRUGS (1)
  1. PROVERA [Suspect]
     Indication: MENSTRUATION IRREGULAR
     Dosage: 10 MG, UNK
     Route: 048
     Dates: start: 201208

REACTIONS (1)
  - Rash generalised [Not Recovered/Not Resolved]
